FAERS Safety Report 6411043-0 (Version None)
Quarter: 2009Q4

REPORT INFORMATION
  Report Type: 
  Country: None (occurrence: None)
  Receive Date: 20091021
  Receipt Date: 20091021
  Transmission Date: 20100525
  Serious: Yes (Life-Threatening)
  Sender: FDA-Public Use
  Company Number: None

PATIENT
  Age: 25 Year
  Sex: Male

DRUGS (1)
  1. ZYBAN [Suspect]

REACTIONS (3)
  - CHEST INJURY [None]
  - GUN SHOT WOUND [None]
  - INTENTIONAL SELF-INJURY [None]
